FAERS Safety Report 12541881 (Version 1)
Quarter: 2016Q3

REPORT INFORMATION
  Report Type: Other
  Country: FR (occurrence: FR)
  Receive Date: 20160708
  Receipt Date: 20160708
  Transmission Date: 20161109
  Serious: Yes (Hospitalization)
  Sender: FDA-Public Use
  Company Number: FR-SYMPLMED PHARMACEUTICALS-2016SYMPLMED000261

PATIENT

DRUGS (6)
  1. COVERAM [Suspect]
     Active Substance: AMLODIPINE\PERINDOPRIL
     Indication: PRODUCT USED FOR UNKNOWN INDICATION
     Dosage: 1 (10MG/10MG) TABLET, QD
     Route: 048
  2. COVERAM [Suspect]
     Active Substance: AMLODIPINE\PERINDOPRIL
     Dosage: 6 (10MG/10MG) TABLET, SINGLE
     Route: 048
     Dates: start: 20160528, end: 20160528
  3. XARELTO [Suspect]
     Active Substance: RIVAROXABAN
     Dosage: 14 (15 MG) TABLETS, SINGLE
     Route: 048
     Dates: start: 20160528, end: 20160528
  4. BISOPROLOL [Suspect]
     Active Substance: BISOPROLOL
     Indication: PRODUCT USED FOR UNKNOWN INDICATION
     Dosage: 1 (1.25 MG) TABLET, QD
     Route: 048
  5. XARELTO [Suspect]
     Active Substance: RIVAROXABAN
     Indication: PRODUCT USED FOR UNKNOWN INDICATION
     Dosage: 1 (15 MG) TABLET, QD
     Route: 048
  6. BISOPROLOL [Suspect]
     Active Substance: BISOPROLOL
     Dosage: 10 (1.25 MG) TABLETS, SINGLE
     Route: 048
     Dates: start: 20160528, end: 20160528

REACTIONS (8)
  - Urinary retention [Unknown]
  - Suicide attempt [Unknown]
  - Urinary bladder haemorrhage [Unknown]
  - Intentional overdose [Unknown]
  - Hyperlactacidaemia [Recovered/Resolved]
  - Haematuria [Recovered/Resolved]
  - Bradycardia [Recovered/Resolved]
  - Acute kidney injury [Recovering/Resolving]

NARRATIVE: CASE EVENT DATE: 20160528
